FAERS Safety Report 15724986 (Version 1)
Quarter: 2018Q4

REPORT INFORMATION
  Report Type: Spontaneous
  Country: US (occurrence: US)
  Receive Date: 20181214
  Receipt Date: 20181214
  Transmission Date: 20190205
  Serious: Yes (Hospitalization)
  Sender: FDA-Public Use
  Company Number: US-SHIONOGI, INC.-2018002138

PATIENT
  Age: 72 Year
  Sex: Female

DRUGS (3)
  1. OXYCODONE [Concomitant]
     Active Substance: OXYCODONE
     Indication: PRODUCT USED FOR UNKNOWN INDICATION
     Dosage: 15 MG, EVERY 4 TO 6 HOURS
     Route: 065
  2. SYMPROIC [Suspect]
     Active Substance: NALDEMEDINE
     Indication: CONSTIPATION
     Dosage: 1 TAB QD
     Route: 065
     Dates: start: 20180703, end: 20180703
  3. MORPHINE [Concomitant]
     Active Substance: MORPHINE
     Indication: ABDOMINAL PAIN
     Dosage: 150 MG, QD
     Route: 065

REACTIONS (10)
  - Enteritis [Unknown]
  - Mobility decreased [Unknown]
  - Abdominal pain [Unknown]
  - Ascites [Unknown]
  - Weight decreased [Unknown]
  - Atelectasis [Unknown]
  - Decreased appetite [Unknown]
  - Gastrointestinal wall thickening [Unknown]
  - Frequent bowel movements [Unknown]
  - Rectal discharge [Unknown]

NARRATIVE: CASE EVENT DATE: 201807
